FAERS Safety Report 12405271 (Version 1)
Quarter: 2016Q2

REPORT INFORMATION
  Report Type: Spontaneous
  Country: US (occurrence: US)
  Receive Date: 20160525
  Receipt Date: 20160525
  Transmission Date: 20160815
  Serious: Yes (Other)
  Sender: FDA-Public Use
  Company Number: US-TAKEDA-2016TUS005478

PATIENT
  Sex: Female

DRUGS (2)
  1. PREVACID [Suspect]
     Active Substance: LANSOPRAZOLE
     Indication: ULCER
  2. PREVACID [Suspect]
     Active Substance: LANSOPRAZOLE
     Indication: GASTROOESOPHAGEAL REFLUX DISEASE
     Dosage: 15 MG, QD
     Route: 048
     Dates: start: 2011

REACTIONS (8)
  - Perforated ulcer [Unknown]
  - Product quality issue [Unknown]
  - Off label use [Not Recovered/Not Resolved]
  - Drug prescribing error [Not Recovered/Not Resolved]
  - Therapeutic response unexpected [Unknown]
  - Exposure during pregnancy [Unknown]
  - Incorrect drug administration duration [Not Recovered/Not Resolved]
  - Live birth [Unknown]

NARRATIVE: CASE EVENT DATE: 2011
